FAERS Safety Report 19769818 (Version 1)
Quarter: 2021Q3

REPORT INFORMATION
  Report Type: Spontaneous
  Country: CN (occurrence: CN)
  Receive Date: 20210831
  Receipt Date: 20210831
  Transmission Date: 20211014
  Serious: Yes (Hospitalization)
  Sender: FDA-Public Use
  Company Number: CN-NOVOPROD-839741

PATIENT
  Age: 60 Year
  Sex: Male
  Weight: 64 kg

DRUGS (6)
  1. TRESIBA [Suspect]
     Active Substance: INSULIN DEGLUDEC
     Dosage: 26 IU, QD
     Route: 058
     Dates: start: 20210315, end: 20210321
  2. TRESIBA [Suspect]
     Active Substance: INSULIN DEGLUDEC
     Dosage: 30 IU, QD
     Route: 058
     Dates: start: 20210322, end: 20210328
  3. TRESIBA [Suspect]
     Active Substance: INSULIN DEGLUDEC
     Dosage: 30 IU, QD
     Route: 058
     Dates: start: 20210329, end: 20210630
  4. TRESIBA [Suspect]
     Active Substance: INSULIN DEGLUDEC
     Dosage: 20 IU, QD
     Route: 058
     Dates: start: 20210308, end: 20210314
  5. METFORMIN HYDROCHLORIDE. [Concomitant]
     Active Substance: METFORMIN HYDROCHLORIDE
     Indication: PRODUCT USED FOR UNKNOWN INDICATION
     Dosage: 500 MG, TID
     Route: 048
     Dates: start: 202010
  6. TRESIBA [Suspect]
     Active Substance: INSULIN DEGLUDEC
     Indication: TYPE 2 DIABETES MELLITUS
     Dosage: 20 IU, QD(BEFORE SLEEPING)
     Route: 058
     Dates: start: 20210301, end: 20210307

REACTIONS (3)
  - Chronic gastritis [Recovering/Resolving]
  - Colitis [Unknown]
  - Duodenogastric reflux [Recovering/Resolving]

NARRATIVE: CASE EVENT DATE: 20210703
